FAERS Safety Report 4881816-4 (Version None)
Quarter: 2006Q1

REPORT INFORMATION
  Report Type: 
  Country: None (occurrence: None)
  Receive Date: 20060112
  Receipt Date: 20060112
  Transmission Date: 20060701
  Serious: Yes (Life-Threatening, Hospitalization)
  Sender: FDA-Public Use
  Company Number: None

PATIENT
  Sex: Female

DRUGS (1)
  1. IFOSFAMIDE [Suspect]
     Indication: EWING'S SARCOMA
     Dosage: 2.7 GRAM X 5 IV
     Route: 042
     Dates: start: 20051210, end: 20051210

REACTIONS (3)
  - ARRHYTHMIA [None]
  - HALLUCINATION [None]
  - SUPRAVENTRICULAR TACHYCARDIA [None]
